FAERS Safety Report 5187916-6 (Version None)
Quarter: 2006Q4

REPORT INFORMATION
  Report Type: 
  Country: None (occurrence: None)
  Receive Date: 20061221
  Receipt Date: 20061212
  Transmission Date: 20070319
  Serious: Yes (Other)
  Sender: FDA-Public Use
  Company Number: PHNU2006DE04129

PATIENT
  Sex: Male

DRUGS (2)
  1. ECSTASY [Suspect]
     Dosage: 10 DF, ONCE/SINGLE
     Route: 048
  2. LEPONEX [Suspect]
     Dosage: 400 MG/DAY
     Route: 048

REACTIONS (4)
  - CONVULSION [None]
  - DRUG ABUSER [None]
  - DRUG INTERACTION [None]
  - PSYCHOTIC DISORDER [None]
